FAERS Safety Report 5775001-1 (Version None)
Quarter: 2008Q2

REPORT INFORMATION
  Report Type: 
  Country: None (occurrence: None)
  Receive Date: 20080617
  Receipt Date: 20080612
  Transmission Date: 20081010
  Serious: Yes (Death, Other)
  Sender: FDA-Public Use
  Company Number: PHHY2008NZ10622

PATIENT
  Sex: Male

DRUGS (2)
  1. CLOZARIL [Suspect]
     Indication: SCHIZOPHRENIA
     Dosage: UNK
     Route: 048
     Dates: start: 19990409
  2. CLOZARIL [Suspect]
     Dosage: UNK
     Dates: start: 20070801

REACTIONS (4)
  - ASTHMA [None]
  - CARDIAC DISORDER [None]
  - OBESITY [None]
  - RENAL FAILURE [None]
